FAERS Safety Report 8763271 (Version 2)
Quarter: 2012Q4

REPORT INFORMATION
  Report Type: 
  Country: JP (occurrence: JP)
  Receive Date: 20120830
  Receipt Date: 20120924
  Transmission Date: 20130627
  Serious: Yes (Other)
  Sender: FDA-Public Use
  Company Number: JP-MPIJNJ-2012-05957

PATIENT

DRUGS (7)
  1. VELCADE [Suspect]
     Indication: MULTIPLE MYELOMA
     Dosage: 1.3 UNK, UNK
     Route: 042
     Dates: start: 20120807
  2. DEXAMETHASONE [Suspect]
     Indication: MULTIPLE MYELOMA
     Dosage: 20 mg, UNK
     Route: 065
     Dates: start: 20120807, end: 20120808
  3. DEXAMETHASONE [Suspect]
     Dosage: 12 mg, UNK
     Route: 065
  4. DEXAMETHASONE [Suspect]
     Dosage: 8 mg, UNK
     Route: 065
  5. DEXAMETHASONE [Suspect]
     Dosage: 4 mg, UNK
     Route: 065
  6. CYCLOPHOSPHAMIDE [Concomitant]
     Indication: MULTIPLE MYELOMA
     Dosage: 300 mg/m2, UNK
     Dates: start: 20120807
  7. OXYCONTIN [Concomitant]
     Indication: PAIN
     Dosage: UNK
     Route: 048

REACTIONS (1)
  - Delirium [Recovered/Resolved]
